FAERS Safety Report 18119629 (Version 4)
Quarter: 2021Q1

REPORT INFORMATION
  Report Type: Report from Study
  Country: CA (occurrence: CA)
  Receive Date: 20200806
  Receipt Date: 20210318
  Transmission Date: 20210419
  Serious: Yes (Hospitalization, Other)
  Sender: FDA-Public Use
  Company Number: CA-SHIRE-CA202014571

PATIENT
  Age: 58 Year
  Sex: Female

DRUGS (7)
  1. GAMMAGARD LIQUID [Suspect]
     Active Substance: HUMAN IMMUNOGLOBULIN G
     Dosage: 23 GRAM, 1X/WEEK
     Route: 058
     Dates: start: 20200419
  2. GAMMAGARD [Concomitant]
     Active Substance: HUMAN IMMUNOGLOBULIN G
     Indication: PRODUCT USED FOR UNKNOWN INDICATION
     Dosage: UNK
     Dates: end: 20200326
  3. GAMMAGARD LIQUID [Suspect]
     Active Substance: HUMAN IMMUNOGLOBULIN G
     Dosage: 20 GRAM, 1/WEEK
     Route: 065
     Dates: start: 20200419
  4. GAMMAGARD LIQUID [Suspect]
     Active Substance: HUMAN IMMUNOGLOBULIN G
     Indication: SECONDARY IMMUNODEFICIENCY
     Dosage: 23 GRAM, 1X/WEEK
     Route: 058
     Dates: start: 20200419
  5. GAMMAGARD LIQUID [Suspect]
     Active Substance: HUMAN IMMUNOGLOBULIN G
     Dosage: 23 GRAM, 1X/WEEK
     Route: 058
     Dates: start: 20200419
  6. GAMMAGARD LIQUID [Suspect]
     Active Substance: HUMAN IMMUNOGLOBULIN G
     Dosage: 23 GRAM, 1/WEEK
     Route: 065
     Dates: start: 20200419
  7. GAMMAGARD LIQUID [Suspect]
     Active Substance: HUMAN IMMUNOGLOBULIN G
     Dosage: 23 GRAM, 1X/WEEK
     Route: 058
     Dates: start: 20200419

REACTIONS (3)
  - Fatigue [Recovered/Resolved]
  - Infected skin ulcer [Not Recovered/Not Resolved]
  - Pyoderma gangrenosum [Not Recovered/Not Resolved]

NARRATIVE: CASE EVENT DATE: 20200419
